FAERS Safety Report 14140889 (Version 2)
Quarter: 2017Q4

REPORT INFORMATION
  Report Type: Spontaneous
  Country: US (occurrence: US)
  Receive Date: 20171030
  Receipt Date: 20171204
  Transmission Date: 20180321
  Serious: Yes (Other)
  Sender: FDA-Public Use
  Company Number: US-WEST-WARD PHARMACEUTICALS CORP.-US-H14001-17-04088

PATIENT
  Sex: Male

DRUGS (1)
  1. METHOTREXATE. [Suspect]
     Active Substance: METHOTREXATE
     Indication: PRODUCT USED FOR UNKNOWN INDICATION
     Route: 065

REACTIONS (15)
  - Heart sounds abnormal [Unknown]
  - Obesity [Unknown]
  - Sleep disorder [Unknown]
  - Blood chloride decreased [Unknown]
  - Loss of personal independence in daily activities [Unknown]
  - Wheezing [Unknown]
  - Hypertension [Unknown]
  - Hypoacusis [Unknown]
  - Abdominal pain [Unknown]
  - Anaemia [Unknown]
  - Blood glucose increased [Unknown]
  - Rheumatoid arthritis [Unknown]
  - Dyspnoea [Unknown]
  - Chest pain [Unknown]
  - Asthenia [Unknown]
